FAERS Safety Report 24196259 (Version 3)
Quarter: 2024Q3

REPORT INFORMATION
  Report Type: Spontaneous
  Country: US (occurrence: US)
  Receive Date: 20240809
  Receipt Date: 20240918
  Transmission Date: 20241016
  Serious: Yes (Hospitalization)
  Sender: LUNDBECK
  Company Number: US-LUNDBECK-DKLU4002708

PATIENT

DRUGS (1)
  1. SABRIL [Suspect]
     Active Substance: VIGABATRIN
     Indication: Epilepsy
     Dosage: 1500 MILLIGRAM
     Route: 048

REACTIONS (3)
  - Haemoglobin decreased [Unknown]
  - Gastric ulcer haemorrhage [Unknown]
  - Hiatus hernia [Unknown]
